FAERS Safety Report 11837939 (Version 1)
Quarter: 2015Q4

REPORT INFORMATION
  Report Type: Spontaneous
  Country: US (occurrence: US)
  Receive Date: 20151215
  Receipt Date: 20151215
  Transmission Date: 20160305
  Serious: No
  Sender: FDA-Public Use
  Company Number: US-BAYER-2015-485988

PATIENT
  Age: 96 Year
  Sex: Female

DRUGS (1)
  1. ZEGERID OTC CAPSULES [Suspect]
     Active Substance: OMEPRAZOLE\SODIUM BICARBONATE
     Dosage: UNK
     Route: 048

REACTIONS (4)
  - Wrong technique in product usage process [None]
  - Abdominal discomfort [None]
  - Product use issue [None]
  - Intercepted drug prescribing error [None]
